FAERS Safety Report 5350265-7 (Version None)
Quarter: 2007Q2

REPORT INFORMATION
  Report Type: 
  Country: None (occurrence: None)
  Receive Date: 20070521
  Receipt Date: 20070319
  Transmission Date: 20071010
  Serious: No
  Sender: FDA-Public Use
  Company Number: WAES 0703USA03789

PATIENT
  Sex: Female

DRUGS (1)
  1. JANUVIA [Suspect]
     Indication: DIABETES MELLITUS
     Dosage: PO
     Route: 048

REACTIONS (5)
  - BLOOD GLUCOSE DECREASED [None]
  - EYE SWELLING [None]
  - FATIGUE [None]
  - HEAD DISCOMFORT [None]
  - LUNG DISORDER [None]
